FAERS Safety Report 16530353 (Version 1)
Quarter: 2019Q3

REPORT INFORMATION
  Report Type: Spontaneous
  Country: US (occurrence: US)
  Receive Date: 20190704
  Receipt Date: 20190704
  Transmission Date: 20191004
  Serious: No
  Sender: FDA-Public Use
  Company Number: US-BEH-2019103578

PATIENT
  Age: 16 Year
  Sex: Female

DRUGS (2)
  1. HIZENTRA [Suspect]
     Active Substance: HUMAN IMMUNOGLOBULIN G
     Indication: HYPOGAMMAGLOBULINAEMIA
     Dosage: 16 GRAM, QW
     Route: 042
     Dates: start: 20190424
  2. HIZENTRA [Suspect]
     Active Substance: HUMAN IMMUNOGLOBULIN G
     Dosage: 8 GRAM, TOT
     Route: 042
     Dates: start: 20190611, end: 20190611

REACTIONS (3)
  - Incorrect route of product administration [Unknown]
  - No adverse event [Unknown]
  - Nausea [Unknown]

NARRATIVE: CASE EVENT DATE: 20190611
